FAERS Safety Report 16686495 (Version 1)
Quarter: 2019Q3

REPORT INFORMATION
  Report Type: Report from Study
  Country: None (occurrence: US)
  Receive Date: 20190809
  Receipt Date: 20190809
  Transmission Date: 20191004
  Serious: Yes (Other)
  Sender: FDA-Public Use
  Company Number: US-ABBVIE-19K-163-2879855-00

PATIENT
  Age: 78 Year
  Sex: Male

DRUGS (1)
  1. ANDROGEL [Suspect]
     Active Substance: TESTOSTERONE
     Indication: PRODUCT USED FOR UNKNOWN INDICATION
     Route: 061

REACTIONS (8)
  - Mastectomy [Unknown]
  - Spinal decompression [Unknown]
  - Limb operation [Unknown]
  - Shoulder operation [Unknown]
  - Spinal fusion surgery [Unknown]
  - Intervertebral disc protrusion [Unknown]
  - Cataract [Unknown]
  - Spinal laminectomy [Unknown]

NARRATIVE: CASE EVENT DATE: 20141027
